FAERS Safety Report 9170252 (Version 2)
Quarter: 2013Q1

REPORT INFORMATION
  Report Type: Spontaneous
  Country: US (occurrence: US)
  Receive Date: 20130319
  Receipt Date: 20130329
  Transmission Date: 20140127
  Serious: Yes (Life-Threatening, Hospitalization, Other)
  Sender: FDA-Public Use
  Company Number: US-ELI_LILLY_AND_COMPANY-US201301007493

PATIENT
  Age: 72 Year
  Sex: Female

DRUGS (7)
  1. CYMBALTA [Suspect]
     Indication: DEPRESSION
     Dosage: 30 MG, QD
     Route: 048
     Dates: start: 20130110, end: 20130117
  2. TOPROL [Concomitant]
  3. ZOFRAN [Concomitant]
  4. COUMADIN [Concomitant]
  5. PEPCID [Concomitant]
  6. ABILIFY [Concomitant]
     Dosage: 2 MG, QD
  7. CARDIZEM                           /00489701/ [Concomitant]

REACTIONS (4)
  - Hyponatraemia [Not Recovered/Not Resolved]
  - Dehydration [Unknown]
  - Intestinal perforation [Unknown]
  - Delusion [Unknown]
